FAERS Safety Report 25096454 (Version 2)
Quarter: 2025Q3

REPORT INFORMATION
  Report Type: Spontaneous
  Country: US (occurrence: US)
  Receive Date: 20250319
  Receipt Date: 20250806
  Transmission Date: 20251021
  Serious: No
  Sender: SANOFI AVENTIS
  Company Number: US-SA-2025SA080169

PATIENT
  Sex: Female

DRUGS (13)
  1. DUPIXENT [Suspect]
     Active Substance: DUPILUMAB
     Indication: Dermatitis atopic
     Dosage: 300 MG, QOW
     Route: 058
     Dates: start: 20210303
  2. ALBUTEROL SULFATE [Concomitant]
     Active Substance: ALBUTEROL SULFATE
  3. ALBUTEROL [Concomitant]
     Active Substance: ALBUTEROL
  4. ALCLOMETASONE [Concomitant]
     Active Substance: ALCLOMETASONE
  5. METHYLPREDNISOLONE [Concomitant]
     Active Substance: METHYLPREDNISOLONE
  6. MOMETASONE [Concomitant]
     Active Substance: MOMETASONE
  7. VITAMINS [Concomitant]
     Active Substance: VITAMINS
  8. TERCONAZOLE [Concomitant]
     Active Substance: TERCONAZOLE
  9. DEXAMETHASONE\TOBRAMYCIN [Concomitant]
     Active Substance: DEXAMETHASONE\TOBRAMYCIN
  10. VALACYCLOVIR [Concomitant]
     Active Substance: VALACYCLOVIR HYDROCHLORIDE
  11. ZYRTEC [Concomitant]
     Active Substance: CETIRIZINE HYDROCHLORIDE
  12. FLUOCINONIDE [Concomitant]
     Active Substance: FLUOCINONIDE
  13. TOBRAMYCIN AND DEXAMETHASONE [Concomitant]
     Active Substance: DEXAMETHASONE\TOBRAMYCIN

REACTIONS (5)
  - Sleep disorder due to a general medical condition [Unknown]
  - Rash [Unknown]
  - Skin discomfort [Unknown]
  - Eye irritation [Unknown]
  - Drug ineffective [Unknown]
